FAERS Safety Report 8911906 (Version 1)
Quarter: 2012Q4

REPORT INFORMATION
  Report Type: 
  Country: US (occurrence: US)
  Receive Date: 20121115
  Receipt Date: 20121115
  Transmission Date: 20130627
  Serious: Yes (Other)
  Sender: FDA-Public Use
  Company Number: US-GILEAD-2012-0064509

PATIENT
  Sex: Male

DRUGS (1)
  1. CAYSTON [Suspect]
     Indication: CYSTIC FIBROSIS
     Route: 055

REACTIONS (3)
  - Hypersensitivity [Unknown]
  - Pharyngeal oedema [Unknown]
  - Dyspnoea [Unknown]
